FAERS Safety Report 8802140 (Version 2)
Quarter: 2012Q4

REPORT INFORMATION
  Report Type: 
  Country: US (occurrence: US)
  Receive Date: 20120921
  Receipt Date: 20121011
  Transmission Date: 20130627
  Serious: No
  Sender: FDA-Public Use
  Company Number: US-BAYER-2012-097468

PATIENT
  Age: 24 Year
  Sex: Female
  Weight: 118.37 kg

DRUGS (4)
  1. MIRENA [Suspect]
     Indication: CONTRACEPTION
     Dosage: 20 mcg/24hr, CONT
     Route: 015
     Dates: start: 20120412, end: 20120917
  2. LISINOPRIL [Concomitant]
     Dosage: UNK
     Dates: start: 20120329
  3. IBUPROFEN [Concomitant]
     Dosage: 800 mg, PRN
  4. OMEPRAZOL [Concomitant]
     Dosage: UNK
     Dates: start: 20120730

REACTIONS (1)
  - Device expulsion [Recovered/Resolved]
